FAERS Safety Report 21087070 (Version 1)
Quarter: 2022Q3

REPORT INFORMATION
  Report Type: Spontaneous
  Country: GB (occurrence: GB)
  Receive Date: 20220715
  Receipt Date: 20220715
  Transmission Date: 20221026
  Serious: Yes (Other)
  Sender: FDA-Public Use
  Company Number: GB-MHRA-MED-202206201539460910-SFGKZ

PATIENT
  Age: 22 Year
  Sex: Female

DRUGS (1)
  1. ISOTRETINOIN [Suspect]
     Active Substance: ISOTRETINOIN
     Indication: Acne
     Dosage: 80 MILLIGRAM, 1 DOSE
     Route: 065

REACTIONS (2)
  - Paronychia [Not Recovered/Not Resolved]
  - Pain of skin [Not Recovered/Not Resolved]

NARRATIVE: CASE EVENT DATE: 20220615
